FAERS Safety Report 12186287 (Version 3)
Quarter: 2016Q1

REPORT INFORMATION
  Report Type: Spontaneous
  Country: IT (occurrence: IT)
  Receive Date: 20160317
  Receipt Date: 20160330
  Transmission Date: 20160526
  Serious: Yes (Death, Hospitalization)
  Sender: FDA-Public Use
  Company Number: IT-ACCORD-038766

PATIENT
  Age: 62 Year
  Sex: Female

DRUGS (1)
  1. CAPECITABINE ACCORD [Suspect]
     Active Substance: CAPECITABINE
     Indication: COLON NEOPLASM
     Dosage: STRENGTH: 500 MG. FROM DAY 1 TO DAY 14 EVERY 21 DAYS
     Route: 048
     Dates: start: 20160209, end: 20160218

REACTIONS (8)
  - Leukopenia [Fatal]
  - Mucosal inflammation [Fatal]
  - Diarrhoea [Unknown]
  - Erythema [Unknown]
  - Neutropenia [Fatal]
  - Thrombocytopenia [Fatal]
  - Oedema [Unknown]
  - Palmar-plantar erythrodysaesthesia syndrome [Fatal]

NARRATIVE: CASE EVENT DATE: 20160220
